FAERS Safety Report 16164962 (Version 2)
Quarter: 2019Q2

REPORT INFORMATION
  Report Type: Report from Study
  Country: JP (occurrence: JP)
  Receive Date: 20190405
  Receipt Date: 20190622
  Transmission Date: 20190711
  Serious: Yes (Hospitalization)
  Sender: FDA-Public Use
  Company Number: JP-TAKEDA-2019TUS019830

PATIENT
  Age: 65 Year
  Sex: Male
  Weight: 46.8 kg

DRUGS (15)
  1. FEBUXOSTAT. [Suspect]
     Active Substance: FEBUXOSTAT
     Indication: TUMOUR LYSIS SYNDROME
     Dosage: 60 MILLIGRAM, QD
     Route: 048
     Dates: start: 20190112, end: 20190201
  2. TAZOPIP [Suspect]
     Active Substance: PIPERACETAZINE\TAZOBACTAM
     Indication: PNEUMONIA
     Dosage: 2.2 GRAM, QID
     Route: 065
     Dates: end: 20190116
  3. VFEND [Concomitant]
     Active Substance: VORICONAZOLE
     Indication: PULMONARY MYCOSIS
     Dosage: 200 MILLIGRAM, BID
     Route: 048
     Dates: start: 20190112
  4. GRANISETRON [Concomitant]
     Active Substance: GRANISETRON
     Indication: PROPHYLAXIS
     Dosage: 1 MILLIGRAM, QD
     Route: 065
     Dates: start: 20190115, end: 20190121
  5. ZITHROMAC [Concomitant]
     Active Substance: AZITHROMYCIN DIHYDRATE
     Indication: PNEUMONIA
     Dosage: 500 MILLIGRAM, QD
     Route: 048
     Dates: end: 20190113
  6. TAKECAB [Concomitant]
     Active Substance: VONOPRAZAN FUMURATE
     Indication: PROPHYLAXIS
     Dosage: 10 MILLIGRAM, QD
     Route: 048
     Dates: start: 20190116
  7. MAXIPIME [Suspect]
     Active Substance: CEFEPIME HYDROCHLORIDE
     Indication: FEBRILE NEUTROPENIA
     Dosage: 1 GRAM, QID
     Route: 065
     Dates: start: 20190116, end: 20190123
  8. PRANLUKAST [Concomitant]
     Active Substance: PRANLUKAST
     Indication: ASTHMA
     Dosage: 225 MILLIGRAM, BID
     Route: 048
  9. TEICOPLANIN [Suspect]
     Active Substance: TEICOPLANIN
     Indication: FEBRILE NEUTROPENIA
     Dosage: 400 MILLIGRAM, BID
     Route: 065
     Dates: start: 20190128, end: 20190129
  10. IDAMYCIN [Suspect]
     Active Substance: IDARUBICIN HYDROCHLORIDE
     Indication: ACUTE MYELOID LEUKAEMIA
     Dosage: 16.5 MILLIGRAM, QD
     Route: 065
     Dates: start: 20190115, end: 20190117
  11. MEROPENEM. [Suspect]
     Active Substance: MEROPENEM
     Indication: FEBRILE NEUTROPENIA
     Dosage: 1 GRAM, TID
     Route: 065
     Dates: start: 20190128, end: 20190208
  12. CYLOCIDE [Suspect]
     Active Substance: CYTARABINE
     Indication: ACUTE MYELOID LEUKAEMIA
     Dosage: 138 MILLIGRAM, QD
     Route: 065
     Dates: start: 20190115, end: 20190121
  13. TEICOPLANIN [Suspect]
     Active Substance: TEICOPLANIN
     Dosage: 400 MILLIGRAM, QD
     Route: 065
     Dates: start: 20190130, end: 20190206
  14. TAZOPIP [Suspect]
     Active Substance: PIPERACETAZINE\TAZOBACTAM
     Dosage: 4.5 GRAM, TID
     Route: 065
     Dates: start: 20190123, end: 20190128
  15. FLUTIFORM [Concomitant]
     Active Substance: FLUTICASONE PROPIONATE\FORMOTEROL FUMARATE
     Indication: ASTHMA
     Dosage: 125 MICROGRAM, BID

REACTIONS (4)
  - Pollakiuria [Not Recovered/Not Resolved]
  - Diarrhoea [Not Recovered/Not Resolved]
  - Febrile neutropenia [Not Recovered/Not Resolved]
  - Fluid retention [Recovering/Resolving]

NARRATIVE: CASE EVENT DATE: 20190116
